FAERS Safety Report 18621728 (Version 2)
Quarter: 2021Q1

REPORT INFORMATION
  Report Type: Spontaneous
  Country: CA (occurrence: CA)
  Receive Date: 20201215
  Receipt Date: 20210322
  Transmission Date: 20210419
  Serious: Yes (Other)
  Sender: FDA-Public Use
  Company Number: CA-CELLTRION INC.-2020CA033690

PATIENT

DRUGS (1)
  1. INFLECTRA [Suspect]
     Active Substance: INFLIXIMAB-DYYB
     Indication: ANKYLOSING SPONDYLITIS
     Dosage: 700 MG, EVERY 8 WEEKS (Q 8 WEEKS)
     Route: 042
     Dates: start: 20201026

REACTIONS (4)
  - Pruritus [Unknown]
  - Chills [Unknown]
  - Off label use [Unknown]
  - Throat irritation [Unknown]

NARRATIVE: CASE EVENT DATE: 20201026
